FAERS Safety Report 8105703 (Version 4)
Quarter: 2013Q4

REPORT INFORMATION
  Report Type: Spontaneous
  Country: US (occurrence: US)
  Receive Date: 20110825
  Receipt Date: 20131125
  Transmission Date: 20140711
  Serious: Yes (Hospitalization, Other)
  Sender: FDA-Public Use
  Company Number: US-BAYER-2011-075733

PATIENT
  Age: 17 Year
  Sex: Female

DRUGS (9)
  1. YAZ [Suspect]
     Indication: CONTRACEPTION
     Dosage: UNK
     Dates: start: 2007, end: 2008
  2. ALLEGRA [Concomitant]
     Dosage: 60 MG, BID
     Dates: start: 20090408
  3. MAXALT [Concomitant]
     Indication: HEADACHE
     Dosage: 10 MG, UNK
     Dates: start: 20090408
  4. BENADRYL [Concomitant]
     Dosage: 2 TSP, QID
     Dates: start: 20090423
  5. HYDROCORTISONE [Concomitant]
     Dosage: 80 MG, UNK
     Dates: start: 20090423
  6. TETRACYCLINE [Concomitant]
     Dosage: 1.5 G, UNK
     Dates: start: 20090423
  7. ZITHROMAX [Concomitant]
     Dosage: 500 MG, DAILY
     Dates: start: 20090408, end: 20090427
  8. PEPCID [Concomitant]
     Dosage: 20 MG, BID
     Dates: start: 20090506
  9. FLEXERIL [Concomitant]
     Dosage: UNK
     Dates: start: 20090506

REACTIONS (2)
  - Gallbladder injury [None]
  - Cholecystitis chronic [None]
